FAERS Safety Report 12445402 (Version 1)
Quarter: 2016Q2

REPORT INFORMATION
  Report Type: Other
  Country: US (occurrence: US)
  Receive Date: 20160608
  Receipt Date: 20160608
  Transmission Date: 20160815
  Serious: No
  Sender: FDA-Public Use
  Company Number: US-LUPIN PHARMACEUTICALS INC.-2016-01052

PATIENT
  Age: 60 Year
  Sex: Female

DRUGS (2)
  1. BIMATOPROST 0.03% [Suspect]
     Active Substance: BIMATOPROST
     Route: 061
  2. BIMATOPROST 0.03% [Suspect]
     Active Substance: BIMATOPROST
     Indication: EYELASH THICKENING
     Route: 061

REACTIONS (2)
  - Blepharal pigmentation [Unknown]
  - Periorbital disorder [Unknown]
